FAERS Safety Report 5504043-6 (Version None)
Quarter: 2008Q1

REPORT INFORMATION
  Report Type: 
  Country: None (occurrence: None)
  Receive Date: 20071030
  Receipt Date: 20071019
  Transmission Date: 20080703
  Serious: Yes (Hospitalization)
  Sender: FDA-Public Use
  Company Number: CIO07012227

PATIENT
  Sex: Female

DRUGS (1)
  1. CREST W/ FLUORISTAN [Suspect]
     Dosage: INTRAORAL
     Route: 048

REACTIONS (3)
  - DYSGEUSIA [None]
  - GASTRIC DISORDER [None]
  - IMPAIRED WORK ABILITY [None]
